FAERS Safety Report 9104969 (Version 2)
Quarter: 2013Q1

REPORT INFORMATION
  Report Type: Spontaneous
  Country: US (occurrence: US)
  Receive Date: 20130220
  Receipt Date: 20130228
  Transmission Date: 20140127
  Serious: Yes (Hospitalization)
  Sender: FDA-Public Use
  Company Number: US-GILEAD-2013-0070070

PATIENT
  Age: 34 Year
  Sex: Female

DRUGS (4)
  1. LETAIRIS [Suspect]
     Indication: COR PULMONALE CHRONIC
     Dosage: 5 MG, UNK
     Route: 048
     Dates: start: 20080331
  2. LETAIRIS [Suspect]
     Indication: ATRIAL SEPTAL DEFECT
     Dates: start: 20100107
  3. PROSTACYCLIN [Concomitant]
  4. REVATIO [Concomitant]

REACTIONS (2)
  - Dyspnoea [Unknown]
  - Swelling [Unknown]
